FAERS Safety Report 6765961-4 (Version None)
Quarter: 2010Q2

REPORT INFORMATION
  Report Type: 
  Country: None (occurrence: None)
  Receive Date: 20100611
  Receipt Date: 20100604
  Transmission Date: 20101027
  Serious: Yes (Hospitalization)
  Sender: FDA-Public Use
  Company Number: B0659972A

PATIENT
  Sex: Male

DRUGS (1)
  1. DUAC [Suspect]
     Indication: ACNE
     Route: 061
     Dates: start: 20100406, end: 20100406

REACTIONS (2)
  - ERYTHEMA [None]
  - FACE OEDEMA [None]
